FAERS Safety Report 14454186 (Version 3)
Quarter: 2018Q3

REPORT INFORMATION
  Report Type: Report from Study
  Country: CA (occurrence: CA)
  Receive Date: 20180129
  Receipt Date: 20180723
  Transmission Date: 20181010
  Serious: Yes (Life-Threatening, Hospitalization, Disabling, Other)
  Sender: FDA-Public Use
  Company Number: CA-BRISTOL-MYERS SQUIBB COMPANY-BMS-2018-003956

PATIENT
  Age: 75 Year
  Sex: Male

DRUGS (1)
  1. ABATACEPT [Suspect]
     Active Substance: ABATACEPT
     Indication: RHEUMATOID ARTHRITIS
     Dosage: 750 MG, Q4WK
     Route: 042
     Dates: start: 201707

REACTIONS (9)
  - Upper limb fracture [Unknown]
  - Contusion [Unknown]
  - Wound [Not Recovered/Not Resolved]
  - Laceration [Unknown]
  - Cellulitis [Not Recovered/Not Resolved]
  - Humerus fracture [Unknown]
  - Discomfort [Unknown]
  - Feeling cold [Unknown]
  - Fall [Unknown]

NARRATIVE: CASE EVENT DATE: 201801
